FAERS Safety Report 13214146 (Version 3)
Quarter: 2017Q1

REPORT INFORMATION
  Report Type: Spontaneous
  Country: JP (occurrence: JP)
  Receive Date: 20170210
  Receipt Date: 20170223
  Transmission Date: 20170428
  Serious: Yes (Other)
  Sender: FDA-Public Use
  Company Number: JP-PFIZER INC-2017054912

PATIENT
  Age: 39 Year
  Sex: Female

DRUGS (3)
  1. MIZORIBINE [Suspect]
     Active Substance: MIZORIBINE
     Indication: IMMUNOSUPPRESSION
     Dosage: 200 MG, DAILY
     Route: 048
  2. TACROLIMUS. [Suspect]
     Active Substance: TACROLIMUS
     Indication: IMMUNOSUPPRESSION
     Dosage: 1.4 MG, DAILY
     Route: 048
  3. METHYLPREDNISOLONE. [Suspect]
     Active Substance: METHYLPREDNISOLONE
     Indication: IMMUNOSUPPRESSION
     Dosage: 15 MG, DAILY
     Route: 048

REACTIONS (1)
  - Diabetes mellitus [Recovering/Resolving]
